FAERS Safety Report 17486810 (Version 1)
Quarter: 2020Q1

REPORT INFORMATION
  Report Type: Spontaneous
  Country: US (occurrence: US)
  Receive Date: 20200219
  Receipt Date: 20200219
  Transmission Date: 20200409
  Serious: Yes (Life-Threatening, Hospitalization)
  Sender: FDA-Public Use
  Company Number: None

PATIENT
  Age: 83 Year
  Sex: Male

DRUGS (1)
  1. OLANZAPINE. [Suspect]
     Active Substance: OLANZAPINE
     Indication: COGNITIVE DISORDER
     Route: 048
     Dates: start: 20170425, end: 20180511

REACTIONS (3)
  - Fall [None]
  - Rhabdomyolysis [None]
  - Neuroleptic malignant syndrome [None]

NARRATIVE: CASE EVENT DATE: 20180511
